FAERS Safety Report 12810711 (Version 1)
Quarter: 2016Q4

REPORT INFORMATION
  Report Type: Spontaneous
  Country: None (occurrence: PE)
  Receive Date: 20161005
  Receipt Date: 20161005
  Transmission Date: 20170207
  Serious: Yes (Other)
  Sender: FDA-Public Use
  Company Number: PE-MERCK KGAA-1058006

PATIENT

DRUGS (1)
  1. NOVOTHYROX [Suspect]
     Active Substance: LEVOTHYROXINE SODIUM

REACTIONS (7)
  - Normal newborn [None]
  - Gait disturbance [None]
  - Complication of pregnancy [None]
  - Maternal exposure during pregnancy [None]
  - Overweight [None]
  - Peripheral swelling [None]
  - Twin pregnancy [None]
